FAERS Safety Report 22020743 (Version 3)
Quarter: 2024Q2

REPORT INFORMATION
  Report Type: Spontaneous
  Country: US (occurrence: US)
  Receive Date: 20230222
  Receipt Date: 20240523
  Transmission Date: 20240716
  Serious: Yes (Hospitalization, Other)
  Sender: FDA-Public Use
  Company Number: US-PFIZER INC-PV202300034074

PATIENT
  Age: 82 Year
  Sex: Female

DRUGS (1)
  1. VYNDAMAX [Suspect]
     Active Substance: TAFAMIDIS
     Dosage: 61 MG
     Route: 048
     Dates: end: 2023

REACTIONS (3)
  - Myocardial infarction [Unknown]
  - Cardiac arrest [Unknown]
  - Malaise [Unknown]

NARRATIVE: CASE EVENT DATE: 20230101
